FAERS Safety Report 4980171-9 (Version None)
Quarter: 2006Q2

REPORT INFORMATION
  Report Type: 
  Country: None (occurrence: None)
  Receive Date: 20060424
  Receipt Date: 20060413
  Transmission Date: 20061013
  Serious: Yes (Death)
  Sender: FDA-Public Use
  Company Number: US-JNJFOC-20060304145

PATIENT
  Sex: Male

DRUGS (10)
  1. REMICADE [Suspect]
     Indication: RHEUMATOID ARTHRITIS
     Route: 042
  2. METHOTREXATE [Concomitant]
  3. NEURONTIN [Concomitant]
  4. SEREVENT [Concomitant]
  5. HYDROCHLOROTHIAZIDE [Concomitant]
  6. MIACALCIN [Concomitant]
  7. DESIPRAMINE HCL [Concomitant]
  8. FOLIC ACID [Concomitant]
  9. SPIRIVA [Concomitant]
  10. ALBUTEROL [Concomitant]

REACTIONS (2)
  - CLOSTRIDIUM COLITIS [None]
  - COLITIS ISCHAEMIC [None]
